FAERS Safety Report 9491573 (Version 1)
Quarter: 2013Q3

REPORT INFORMATION
  Report Type: Report from Study
  Country: EC (occurrence: EC)
  Receive Date: 20130830
  Receipt Date: 20130830
  Transmission Date: 20140515
  Serious: Yes (Hospitalization)
  Sender: FDA-Public Use
  Company Number: PHHY2013EC094703

PATIENT
  Age: 86 Year
  Sex: Female

DRUGS (4)
  1. DIOVAN [Suspect]
     Indication: HYPERTENSION
     Dosage: 80 MG, QD
     Route: 048
     Dates: start: 201208, end: 201212
  2. DIOVAN [Suspect]
     Dosage: 80 MG, QD
     Route: 048
     Dates: start: 201305
  3. AMLODIPINE [Concomitant]
     Dosage: UNK UKN, UNK
     Route: 048
     Dates: end: 201212
  4. AMLODIPINE [Concomitant]
     Dosage: UNK UKN, UNK
     Route: 048
     Dates: start: 201305

REACTIONS (2)
  - Fall [Recovering/Resolving]
  - Upper limb fracture [Recovering/Resolving]
